FAERS Safety Report 4498516-5 (Version None)
Quarter: 2004Q4

REPORT INFORMATION
  Report Type: 
  Country: None (occurrence: None)
  Receive Date: 20041105
  Receipt Date: 20041020
  Transmission Date: 20050328
  Serious: Yes (Hospitalization, Other)
  Sender: FDA-Public Use
  Company Number: T04-USA-03758-01

PATIENT
  Age: 77 Year
  Sex: Female
  Weight: 66.2252 kg

DRUGS (6)
  1. MEMANTINE HCL [Suspect]
     Indication: POST HERPETIC NEURALGIA
     Dosage: 5 CAPSULE QD PO
     Route: 048
     Dates: start: 20040616, end: 20040814
  2. PLACEBO (SINGLE BLIND) [Suspect]
     Indication: POST HERPETIC NEURALGIA
     Dosage: 2 CAPSULE TID PO
     Route: 048
     Dates: start: 20040609, end: 20040615
  3. SYNTHROID [Concomitant]
  4. FOSAMAX (ALENDRONATE SODUM) [Concomitant]
  5. ALTACE [Concomitant]
  6. HYDROCHLOROTHIAZIDE [Concomitant]

REACTIONS (29)
  - ACTIVITIES OF DAILY LIVING IMPAIRED [None]
  - AORTIC VALVE INCOMPETENCE [None]
  - APHASIA [None]
  - ASTHENIA [None]
  - ATAXIA [None]
  - ATRIOVENTRICULAR BLOCK FIRST DEGREE [None]
  - BALANCE DISORDER [None]
  - BLOOD PRESSURE INCREASED [None]
  - BRADYPHRENIA [None]
  - CEREBRAL ATROPHY [None]
  - CONFUSIONAL STATE [None]
  - DIFFICULTY IN WALKING [None]
  - DIZZINESS [None]
  - DYSPHAGIA [None]
  - GAIT DISTURBANCE [None]
  - GAZE PALSY [None]
  - HYPOKALAEMIA [None]
  - LABILE BLOOD PRESSURE [None]
  - MEDICATION ERROR [None]
  - MENTAL IMPAIRMENT [None]
  - MENTAL STATUS CHANGES [None]
  - MOBILITY DECREASED [None]
  - NUCLEAR MAGNETIC RESONANCE IMAGING BRAIN ABNORMAL [None]
  - PARKINSON'S DISEASE [None]
  - PARKINSONISM [None]
  - RESPIRATORY RATE INCREASED [None]
  - SPEECH DISORDER [None]
  - STRABISMUS [None]
  - VENTRICULAR HYPERTROPHY [None]
